FAERS Safety Report 21384513 (Version 4)
Quarter: 2022Q4

REPORT INFORMATION
  Report Type: Report from Study
  Country: US (occurrence: US)
  Receive Date: 20220928
  Receipt Date: 20221219
  Transmission Date: 20230112
  Serious: No
  Sender: FDA-Public Use
  Company Number: US-NOVARTISTESTPH-NVSC2022US219096

PATIENT
  Sex: Female

DRUGS (1)
  1. TABRECTA [Suspect]
     Active Substance: CAPMATINIB
     Indication: Product used for unknown indication
     Dosage: UNK
     Route: 048
     Dates: start: 20220923

REACTIONS (9)
  - Illness [Unknown]
  - Muscle spasms [Unknown]
  - Insomnia [Recovering/Resolving]
  - Flatulence [Unknown]
  - Peripheral swelling [Unknown]
  - Nausea [Recovering/Resolving]
  - Fatigue [Unknown]
  - Pleural effusion [Unknown]
  - Hypersensitivity [Unknown]
